FAERS Safety Report 5158853-8 (Version None)
Quarter: 2006Q4

REPORT INFORMATION
  Report Type: 
  Country: None (occurrence: None)
  Receive Date: 20061117
  Receipt Date: 20061107
  Transmission Date: 20070319
  Serious: Yes (Other)
  Sender: FDA-Public Use
  Company Number: 2006136563

PATIENT
  Age: 67 Year
  Sex: Female
  Weight: 76.6579 kg

DRUGS (5)
  1. LIPITOR [Suspect]
     Indication: BLOOD CHOLESTEROL INCREASED
     Dosage: 30 MG 30 MG, 1 IN 1 D)
     Dates: end: 20061027
  2. HYDROCHLOROTHIAZIDE [Concomitant]
  3. ASPIRIN [Concomitant]
  4. IRON (IRON) [Concomitant]
  5. PREVACID [Concomitant]

REACTIONS (4)
  - ASTHENIA [None]
  - DYSSTASIA [None]
  - MUSCLE ATROPHY [None]
  - MYALGIA [None]
